FAERS Safety Report 17172725 (Version 2)
Quarter: 2019Q4

REPORT INFORMATION
  Report Type: Spontaneous
  Country: US (occurrence: US)
  Receive Date: 20191218
  Receipt Date: 20191226
  Transmission Date: 20200122
  Serious: No
  Sender: FDA-Public Use
  Company Number: US-TEVA-2019-US-1152692

PATIENT
  Sex: Female

DRUGS (3)
  1. ALPRAZOLAM TABLET [Suspect]
     Active Substance: ALPRAZOLAM
     Indication: ANXIETY
     Dosage: 15-20 YEARS
     Route: 065
     Dates: start: 20191124
  2. ALPRAZOLAM TABLET [Suspect]
     Active Substance: ALPRAZOLAM
     Indication: PANIC ATTACK
  3. ALPRAZOLAM TABLET [Suspect]
     Active Substance: ALPRAZOLAM
     Indication: NERVOUSNESS

REACTIONS (3)
  - Tension [Unknown]
  - Anxiety [Unknown]
  - Drug ineffective [Unknown]

NARRATIVE: CASE EVENT DATE: 20191124
